FAERS Safety Report 5032614-2 (Version None)
Quarter: 2006Q2

REPORT INFORMATION
  Report Type: 
  Country: None (occurrence: None)
  Receive Date: 20060622
  Receipt Date: 20060515
  Transmission Date: 20061013
  Serious: Yes (Hospitalization, Other)
  Sender: FDA-Public Use
  Company Number: PHRM2006FR01561

PATIENT
  Age: 68 Year
  Sex: Female

DRUGS (2)
  1. FEMARA [Suspect]
     Indication: BREAST CANCER
     Dosage: 2.5 MG PER DAY
     Route: 048
     Dates: start: 20040905, end: 20050430
  2. FEMARA [Suspect]
     Dosage: 2.5 MG DAILY
     Route: 048
     Dates: start: 20050812, end: 20060115

REACTIONS (3)
  - CATARACT [None]
  - CATARACT OPERATION [None]
  - VISUAL ACUITY REDUCED [None]
